FAERS Safety Report 9638690 (Version 1)
Quarter: 2013Q4

REPORT INFORMATION
  Report Type: Spontaneous
  Country: US (occurrence: US)
  Receive Date: 20131022
  Receipt Date: 20131022
  Transmission Date: 20140711
  Serious: Yes (Other)
  Sender: FDA-Public Use
  Company Number: US-UCBSA-100242

PATIENT
  Sex: Male

DRUGS (2)
  1. VIMPAT [Suspect]
     Indication: CONVULSION
     Dosage: DOSE STRENGTH: 100 MG
  2. KEPPRA [Suspect]
     Indication: CONVULSION
     Dosage: DOSE STRENGTH: 1000 MG

REACTIONS (3)
  - Grand mal convulsion [Unknown]
  - Hand fracture [Unknown]
  - Fall [Unknown]
